FAERS Safety Report 4290274-2 (Version None)
Quarter: 2004Q1

REPORT INFORMATION
  Report Type: 
  Country: None (occurrence: None)
  Receive Date: 20040209
  Receipt Date: 20040129
  Transmission Date: 20041129
  Serious: Yes (Death, Other)
  Sender: FDA-Public Use
  Company Number: 200323605BWH

PATIENT
  Age: 84 Year
  Sex: Female
  Weight: 77 kg

DRUGS (7)
  1. TRASYLOL [Suspect]
     Dosage: INTRAVENOUS
     Route: 042
     Dates: start: 20030912
  2. TRASYLOL [Suspect]
  3. TRASYLOL [Suspect]
  4. PLAVIX [Concomitant]
  5. HEPARIN [Concomitant]
  6. PROTAMINE SULFATE [Concomitant]
  7. PREDNISONE [Concomitant]

REACTIONS (3)
  - CARDIOGENIC SHOCK [None]
  - ELECTROCARDIOGRAM ST SEGMENT ELEVATION [None]
  - VASCULAR GRAFT OCCLUSION [None]
